FAERS Safety Report 9905527 (Version 1)
Quarter: 2013Q2

REPORT INFORMATION
  Report Type: Spontaneous
  Country: US (occurrence: None)
  Receive Date: 20130305
  Receipt Date: 20130305
  Transmission Date: 20140414
  Serious: Yes (Other)
  Sender: FDA-Public Use
  Company Number: 163-21880-12041660

PATIENT
  Age: 88 Year
  Sex: Female

DRUGS (1)
  1. REVLIMID [Suspect]
     Indication: PLASMA CELL MYELOMA
     Dosage: 10 MG, DAILY FOR 21DAYS THEN 7 DAYS, OFF?08/05/2010 - PERMANENTLY DISCONTINUED
     Route: 048
     Dates: start: 20100805

REACTIONS (1)
  - Plasma cell myeloma [None]
